FAERS Safety Report 10238494 (Version 1)
Quarter: 2014Q2

REPORT INFORMATION
  Report Type: Spontaneous
  Country: US (occurrence: US)
  Receive Date: 20140616
  Receipt Date: 20140616
  Transmission Date: 20141212
  Serious: Yes (Hospitalization, Other)
  Sender: FDA-Public Use
  Company Number: US-009507513-1406USA005611

PATIENT
  Sex: Female

DRUGS (1)
  1. NUVARING [Suspect]
     Dosage: UNK
     Dates: end: 2013

REACTIONS (10)
  - Cholecystectomy [Unknown]
  - Gallbladder disorder [Unknown]
  - Pulmonary embolism [Unknown]
  - Mammoplasty [Unknown]
  - Rhinoplasty [Unknown]
  - Umbilical hernia repair [Unknown]
  - Foot operation [Unknown]
  - Foot operation [Unknown]
  - Hiatus hernia [Unknown]
  - Limb injury [Unknown]
